FAERS Safety Report 20964194 (Version 2)
Quarter: 2022Q2

REPORT INFORMATION
  Report Type: Spontaneous
  Country: US (occurrence: US)
  Receive Date: 20220615
  Receipt Date: 20220615
  Transmission Date: 20220721
  Serious: Yes (Life-Threatening, Other)
  Sender: FDA-Public Use
  Company Number: US-PFIZER INC-202200820474

PATIENT
  Age: 14 Year
  Sex: Male

DRUGS (7)
  1. METHOTREXATE SODIUM [Suspect]
     Active Substance: METHOTREXATE SODIUM
     Indication: Osteosarcoma
     Dosage: 8 G/M2
     Route: 042
  2. METHOTREXATE SODIUM [Suspect]
     Active Substance: METHOTREXATE SODIUM
     Indication: Chondroblastoma
     Dosage: GRADUALLY ESCALATED TO 20 G/M2 OVER 5 MONTHS
     Route: 042
  3. METHOTREXATE SODIUM [Suspect]
     Active Substance: METHOTREXATE SODIUM
     Dosage: 12 TREATMENTS OVER 5 MONTHS UNK
     Route: 042
  4. LEUCOVORIN CALCIUM [Suspect]
     Active Substance: LEUCOVORIN CALCIUM
     Indication: Osteosarcoma
     Dosage: 12 TREATMENTS OVER 5 MONTHS
  5. LEUCOVORIN CALCIUM [Suspect]
     Active Substance: LEUCOVORIN CALCIUM
     Indication: Chondroblastoma
  6. VINCRISTINE [Concomitant]
     Active Substance: VINCRISTINE
  7. PHENYTOIN SODIUM [Concomitant]
     Active Substance: PHENYTOIN SODIUM
     Indication: Partial seizures
     Dosage: UNK

REACTIONS (6)
  - Leukoencephalopathy [Recovering/Resolving]
  - Neurotoxicity [Recovering/Resolving]
  - Lung cancer metastatic [Unknown]
  - Lethargy [Recovering/Resolving]
  - Discomfort [Recovering/Resolving]
  - Confusional state [Recovering/Resolving]
